FAERS Safety Report 9717544 (Version 2)
Quarter: 2013Q4

REPORT INFORMATION
  Report Type: Spontaneous
  Country: US (occurrence: US)
  Receive Date: 20131127
  Receipt Date: 20131127
  Transmission Date: 20140711
  Serious: No
  Sender: FDA-Public Use
  Company Number: US-GILEAD-2009-0020201

PATIENT
  Sex: Male
  Weight: 136.8 kg

DRUGS (8)
  1. LETAIRIS [Suspect]
     Indication: PULMONARY ARTERIAL HYPERTENSION
     Route: 048
     Dates: start: 20090116, end: 20090121
  2. COUMADIN [Concomitant]
  3. LASIX [Concomitant]
  4. DILTIAZEM HCL [Concomitant]
  5. VYTORIN [Concomitant]
     Route: 048
  6. CLONAZEPAM [Concomitant]
  7. OXYCODONE [Concomitant]
  8. HYDROCORTISONE [Concomitant]

REACTIONS (4)
  - Blood potassium abnormal [Unknown]
  - Muscle spasms [Unknown]
  - Fatigue [Unknown]
  - Flushing [Unknown]
